FAERS Safety Report 13380764 (Version 1)
Quarter: 2017Q1

REPORT INFORMATION
  Report Type: Spontaneous
  Country: FR (occurrence: FR)
  Receive Date: 20170329
  Receipt Date: 20170329
  Transmission Date: 20170429
  Serious: Yes (Hospitalization)
  Sender: FDA-Public Use
  Company Number: FR-009507513-1703FRA012689

PATIENT
  Age: 80 Year
  Sex: Female

DRUGS (3)
  1. FOSAMAX [Suspect]
     Active Substance: ALENDRONATE SODIUM
     Dosage: 1 DF, QW
     Route: 048
     Dates: start: 2006, end: 201612
  2. OROCAL [Concomitant]
     Active Substance: CALCIUM CARBONATE
     Dosage: UNK, LONG TERM FOR ABOUT 10 YEARS
  3. TARDYFERON [Concomitant]
     Active Substance: FERROUS SULFATE
     Dosage: UNK, LONG TERM FOR ABOUT 10 YEARS

REACTIONS (1)
  - Fracture [Unknown]

NARRATIVE: CASE EVENT DATE: 201506
